FAERS Safety Report 15218794 (Version 2)
Quarter: 2018Q3

REPORT INFORMATION
  Report Type: Report from Study
  Country: NL (occurrence: NL)
  Receive Date: 20180731
  Receipt Date: 20180803
  Transmission Date: 20181010
  Serious: Yes (Life-Threatening, Hospitalization)
  Sender: FDA-Public Use
  Company Number: NL-CONCORDIA PHARMACEUTICALS INC.-E2B_00014863

PATIENT
  Age: 69 Year
  Sex: Male

DRUGS (10)
  1. CITALOPRAM [Concomitant]
     Active Substance: CITALOPRAM HYDROBROMIDE
     Dosage: 1DD20MG
  2. OMEPRAZOL 40MG [Concomitant]
     Dosage: 1DD1
  3. ALENDRONINEZUUR 70MG [Concomitant]
     Dosage: LXPER WEEK
  4. FENPROCOUMON [Concomitant]
     Active Substance: PHENPROCOUMON
  5. PREDNISOLONE. [Suspect]
     Active Substance: PREDNISOLONE
     Indication: RHEUMATOID ARTHRITIS
     Dosage: 7.5MG, 2X/D
     Dates: start: 20180116
  6. METHOTREXATE (METHOTREXATE SODIUM) [Suspect]
     Active Substance: METHOTREXATE SODIUM
     Indication: RHEUMATOID ARTHRITIS
     Dosage: 25MG, 1X/W
     Dates: start: 20180116, end: 20180612
  7. TOCILIZUMAB. [Suspect]
     Active Substance: TOCILIZUMAB
     Indication: RHEUMATOID ARTHRITIS
     Dosage: 162MG, 1X/W
     Dates: start: 20160914, end: 20180612
  8. FOLIUMZUUR [Concomitant]
     Active Substance: FOLIC ACID
     Dosage: 1DD10MG
  9. DICLOFENAC RETARD 75MG [Concomitant]
     Dosage: 2DD75MG
  10. CALCIUMCARB/COLECALC 800IE/500MG [Concomitant]
     Dosage: 1DD1

REACTIONS (2)
  - JC virus CSF test positive [Unknown]
  - Progressive multifocal leukoencephalopathy [Recovering/Resolving]

NARRATIVE: CASE EVENT DATE: 20180612
